FAERS Safety Report 5169393-4 (Version None)
Quarter: 2006Q4

REPORT INFORMATION
  Report Type: 
  Country: None (occurrence: None)
  Receive Date: 20061201
  Receipt Date: 20061120
  Transmission Date: 20070319
  Serious: Yes (Other)
  Sender: FDA-Public Use
  Company Number: 2006136297

PATIENT
  Age: 96 Year
  Sex: Male

DRUGS (3)
  1. XALATAN [Suspect]
     Indication: GLAUCOMA
     Dosage: 1 DROP, INTRAOCULAR
     Route: 031
     Dates: start: 20000314
  2. BETOPTIC [Concomitant]
  3. NIFLAN            (PRANOPROFEN) [Concomitant]

REACTIONS (1)
  - HALLUCINATION [None]
